FAERS Safety Report 4356746-7 (Version None)
Quarter: 2004Q2

REPORT INFORMATION
  Report Type: 
  Country: None (occurrence: None)
  Receive Date: 20040507
  Receipt Date: 20040503
  Transmission Date: 20050107
  Serious: Yes (Death)
  Sender: FDA-Public Use
  Company Number: USA-2003-0011415

PATIENT
  Age: 55 Year
  Sex: Male
  Weight: 124.7 kg

DRUGS (1)
  1. OXYCODONE HCL [Suspect]
     Dosage: UNK, UNK, UNK
     Route: 065

REACTIONS (1)
  - SUDDEN DEATH [None]
